FAERS Safety Report 20775065 (Version 3)
Quarter: 2024Q2

REPORT INFORMATION
  Report Type: Spontaneous
  Country: JP (occurrence: JP)
  Receive Date: 20220502
  Receipt Date: 20240619
  Transmission Date: 20240715
  Serious: Yes (Other)
  Sender: FDA-Public Use
  Company Number: JP-TEVA-2022-JP-2031146

PATIENT
  Age: 57 Year
  Sex: Male

DRUGS (4)
  1. TRISENOX [Suspect]
     Active Substance: ARSENIC TRIOXIDE
     Indication: Acute promyelocytic leukaemia
     Route: 042
  2. TRISENOX [Suspect]
     Active Substance: ARSENIC TRIOXIDE
     Indication: Acute promyelocytic leukaemia
     Route: 042
  3. TAMIBAROTENE [Suspect]
     Active Substance: TAMIBAROTENE
     Indication: Acute promyelocytic leukaemia
     Route: 048
  4. TAMIBAROTENE [Suspect]
     Active Substance: TAMIBAROTENE
     Indication: Acute promyelocytic leukaemia
     Route: 048

REACTIONS (3)
  - Differentiation syndrome [Recovered/Resolved]
  - Thyroiditis [Recovering/Resolving]
  - Therapeutic product effect incomplete [Unknown]
